FAERS Safety Report 9439092 (Version 1)
Quarter: 2013Q3

REPORT INFORMATION
  Report Type: Report from Study
  Country: CA (occurrence: CA)
  Receive Date: 20130802
  Receipt Date: 20130802
  Transmission Date: 20140515
  Serious: Yes (Hospitalization, Other)
  Sender: FDA-Public Use
  Company Number: CA-ABBOTT-13P-028-1125298-00

PATIENT
  Age: 56 Year
  Sex: Female
  Weight: 65.83 kg

DRUGS (3)
  1. HUMIRA [Suspect]
     Indication: ANKYLOSING SPONDYLITIS
     Route: 058
     Dates: start: 20091124, end: 201302
  2. HUMIRA [Suspect]
     Route: 058
     Dates: start: 20130218
  3. NAPROXEN [Concomitant]
     Indication: BACK PAIN
     Dates: end: 201302

REACTIONS (4)
  - Angina pectoris [Unknown]
  - Coronary artery occlusion [Recovered/Resolved]
  - Back pain [Not Recovered/Not Resolved]
  - Arthropathy [Not Recovered/Not Resolved]
